FAERS Safety Report 16384380 (Version 1)
Quarter: 2019Q2

REPORT INFORMATION
  Report Type: Spontaneous
  Country: IR (occurrence: IR)
  Receive Date: 20190603
  Receipt Date: 20190603
  Transmission Date: 20190711
  Serious: Yes (Life-Threatening, Hospitalization, Other)
  Sender: FDA-Public Use
  Company Number: IR-HERITAGE PHARMACEUTICALS-2019HTG00244

PATIENT
  Age: 38 Year
  Sex: Female

DRUGS (2)
  1. HYDRALAZINE HYDROCHLORIDE. [Suspect]
     Active Substance: HYDRALAZINE HYDROCHLORIDE
     Dosage: 750 MG (30 X 25 MG TABLETS)
     Route: 048
  2. CLONAZEPAM. [Suspect]
     Active Substance: CLONAZEPAM
     Dosage: 10 MG (10 X 1 MG TABLETS)
     Route: 048

REACTIONS (7)
  - Electrocardiogram T wave inversion [Recovered/Resolved]
  - Lethargy [Recovered/Resolved]
  - Haemodynamic instability [Recovered/Resolved]
  - Intentional overdose [Recovered/Resolved]
  - Suicide attempt [Recovered/Resolved]
  - Acute myocardial infarction [Recovered/Resolved]
  - Mitral valve incompetence [Recovered/Resolved]
